FAERS Safety Report 12691651 (Version 1)
Quarter: 2016Q3

REPORT INFORMATION
  Report Type: Spontaneous
  Country: US (occurrence: US)
  Receive Date: 20160826
  Receipt Date: 20160826
  Transmission Date: 20161109
  Serious: No
  Sender: FDA-Public Use
  Company Number: US-IGSA-GTI003755

PATIENT
  Age: 61 Year
  Sex: Male

DRUGS (7)
  1. METOPROLOL. [Concomitant]
     Active Substance: METOPROLOL
  2. PLASBUMIN-25 [Suspect]
     Active Substance: ALBUMIN HUMAN
     Indication: FLUID REPLACEMENT
     Route: 042
     Dates: start: 20151209, end: 20151209
  3. LEVAQUIN [Concomitant]
     Active Substance: LEVOFLOXACIN
  4. FUROSEMIDE. [Concomitant]
     Active Substance: FUROSEMIDE
  5. XIFAXAN [Concomitant]
     Active Substance: RIFAXIMIN
  6. LACTULOSE. [Concomitant]
     Active Substance: LACTULOSE
  7. PROTONIX [Concomitant]
     Active Substance: PANTOPRAZOLE SODIUM

REACTIONS (2)
  - Retching [Recovered/Resolved]
  - Nausea [Recovered/Resolved]

NARRATIVE: CASE EVENT DATE: 20151209
